FAERS Safety Report 6412996-7 (Version None)
Quarter: 2009Q4

REPORT INFORMATION
  Report Type: 
  Country: None (occurrence: None)
  Receive Date: 20091023
  Receipt Date: 20091019
  Transmission Date: 20100525
  Serious: Yes (Other)
  Sender: FDA-Public Use
  Company Number: PHHY2009FR23935

PATIENT
  Age: 34 Year
  Sex: Female

DRUGS (29)
  1. NEORAL [Suspect]
     Indication: RENAL TRANSPLANT
     Dosage: 100 MG, BID
     Route: 048
     Dates: start: 20080801, end: 20081021
  2. NEORAL [Suspect]
     Dosage: 50 MG, BID
     Route: 048
     Dates: start: 20081022, end: 20081105
  3. NEORAL [Suspect]
     Dosage: 25 MG, BID
     Route: 048
     Dates: start: 20081106, end: 20081217
  4. IMUREL [Suspect]
     Dosage: 75 MG, BID
     Route: 048
     Dates: start: 20080613, end: 20080821
  5. IMUREL [Suspect]
     Dosage: 50 MG, BID
     Route: 048
     Dates: start: 20080822, end: 20080905
  6. IMUREL [Suspect]
     Dosage: 25 MG, QD
     Route: 048
     Dates: start: 20080906, end: 20080916
  7. RENAGEL [Suspect]
     Dosage: 800 MG, TID
     Route: 048
     Dates: start: 20080828, end: 20081215
  8. KAYEXALATE [Suspect]
     Dosage: 1 DF, QD
     Route: 048
     Dates: start: 20080613, end: 20080804
  9. KAYEXALATE [Suspect]
     Dosage: 2 DF DAILY
     Route: 048
     Dates: start: 20080805, end: 20081115
  10. MUCOMYST [Suspect]
     Dosage: 200 MG, BID
     Route: 048
     Dates: start: 20081107, end: 20081110
  11. PIVALONE [Suspect]
     Dosage: 2 DROPS BID
     Route: 045
     Dates: start: 20081031, end: 20081107
  12. RHINOFLUIMUCIL [Suspect]
     Dosage: 2 DF, QD
     Route: 045
     Dates: start: 20081107, end: 20081110
  13. ATARAX [Suspect]
     Dosage: 25 MG, QD
     Route: 048
     Dates: start: 20080818, end: 20081217
  14. ORELOX [Suspect]
     Dosage: 100 MG, BID
     Route: 048
     Dates: start: 20081107, end: 20081117
  15. ISOTRETINOIN [Suspect]
     Dosage: 1 DF, BID
     Route: 061
     Dates: start: 20080829, end: 20080916
  16. ERYTHROMYCINE [Suspect]
     Dosage: 1 DF, BID
     Route: 061
     Dates: start: 20080829, end: 20080916
  17. RUBOZINC [Suspect]
     Dosage: 15 MG, QD
     Route: 048
     Dates: start: 20080829, end: 20080916
  18. AMLODIPINE BESYLATE [Suspect]
     Dosage: 5 MG, QD
     Route: 048
     Dates: start: 20080620, end: 20080916
  19. AMLODIPINE BESYLATE [Suspect]
     Dosage: 10 MG, QD
     Route: 048
     Dates: start: 20080917, end: 20081215
  20. LASILIX [Suspect]
     Dosage: 500 MG, BID
     Route: 048
     Dates: start: 20080613, end: 20081215
  21. SPECIAFOLDINE [Suspect]
     Dosage: 5 MG, BID
     Route: 048
     Dates: start: 20081008, end: 20081217
  22. UN-ALFA [Suspect]
     Dosage: 0.5 UG, QD
     Route: 048
     Dates: start: 20080704, end: 20081017
  23. ESOMEPRAZOLE MAGNESIUM [Suspect]
     Dosage: 40 MG, QD
     Route: 048
     Dates: start: 20080613, end: 20080821
  24. ESOMEPRAZOLE MAGNESIUM [Suspect]
     Dosage: 20 MG, QD
     Route: 048
     Dates: start: 20080822, end: 20081217
  25. ARANESP [Suspect]
     Dosage: 60 UG, QW
     Route: 058
     Dates: start: 20080727, end: 20080928
  26. ARANESP [Suspect]
     Dosage: 80 UG, QW2
     Route: 058
     Dates: start: 20080929, end: 20081217
  27. VENOFER [Suspect]
     Dosage: 100 MG, QW2
     Route: 042
     Dates: start: 20080613, end: 20081016
  28. VENOFER [Suspect]
     Dosage: 100 MG, QW3
     Route: 042
     Dates: start: 20081017, end: 20081214
  29. VENOFER [Suspect]
     Dosage: 100 MG, QW2
     Route: 042
     Dates: start: 20081215, end: 20081217

REACTIONS (4)
  - DIALYSIS [None]
  - DRUG EXPOSURE DURING PREGNANCY [None]
  - RENAL GRAFT LOSS [None]
  - STILLBIRTH [None]
